FAERS Safety Report 9500514 (Version 1)
Quarter: 2013Q1

REPORT INFORMATION
  Report Type: Spontaneous
  Country: US (occurrence: None)
  Receive Date: 20130107
  Receipt Date: 20130107
  Transmission Date: 20140127
  Serious: No
  Sender: FDA-Public Use
  Company Number: PHHY2012US100474

PATIENT
  Age: 57 Year
  Sex: Male

DRUGS (2)
  1. GILENYA [Suspect]
     Route: 048
     Dates: start: 20110602, end: 20110615
  2. FAMPRIDINE ( FAMPRIDINE) [Concomitant]

REACTIONS (4)
  - Aura [None]
  - Multiple sclerosis relapse [None]
  - Muscular weakness [None]
  - Pain in extremity [None]
